FAERS Safety Report 5390170-3 (Version None)
Quarter: 2007Q3

REPORT INFORMATION
  Report Type: 
  Country: None (occurrence: None)
  Receive Date: 20070716
  Receipt Date: 20070716
  Transmission Date: 20080115
  Serious: Yes (Life-Threatening)
  Sender: FDA-Public Use
  Company Number: None

PATIENT
  Age: 35 Year
  Sex: Female
  Weight: 52.6173 kg

DRUGS (1)
  1. AMBIEN CR [Suspect]
     Indication: SLEEP DISORDER
     Dosage: 12.5MG QHS PO
     Route: 048
     Dates: start: 20070611, end: 20070701

REACTIONS (5)
  - ABNORMAL SLEEP-RELATED EVENT [None]
  - AMNESTIC DISORDER [None]
  - CONFUSIONAL STATE [None]
  - CONVULSION [None]
  - IMPAIRED DRIVING ABILITY [None]
